FAERS Safety Report 22929288 (Version 2)
Quarter: 2023Q4

REPORT INFORMATION
  Report Type: Spontaneous
  Country: US (occurrence: None)
  Receive Date: 20230911
  Receipt Date: 20231003
  Transmission Date: 20240110
  Serious: Yes (Other)
  Sender: FDA-Public Use
  Company Number: US-INFO-20230157

PATIENT
  Sex: Female

DRUGS (1)
  1. ZOLEDRONIC ACID [Suspect]
     Active Substance: ZOLEDRONIC ACID
     Indication: Osteoporosis
     Dosage: IN TOTAL
     Route: 040
     Dates: start: 20230327, end: 20230327

REACTIONS (8)
  - Vision blurred [Unknown]
  - Product colour issue [Unknown]
  - Product administration error [Unknown]
  - Palpitations [Not Recovered/Not Resolved]
  - Skin burning sensation [Not Recovered/Not Resolved]
  - Pyrexia [Not Recovered/Not Resolved]
  - Off label use [Unknown]
  - Incorrect dose administered [Unknown]

NARRATIVE: CASE EVENT DATE: 20230327
